FAERS Safety Report 19202897 (Version 1)
Quarter: 2021Q2

REPORT INFORMATION
  Report Type: Spontaneous
  Country: US (occurrence: US)
  Receive Date: 20210430
  Receipt Date: 20210430
  Transmission Date: 20210717
  Serious: Yes (Other)
  Sender: FDA-Public Use
  Company Number: US-TAKEDA-2021TUS026581

PATIENT
  Sex: Female
  Weight: 76 kg

DRUGS (1)
  1. PENTASA [Suspect]
     Active Substance: MESALAMINE
     Indication: COLITIS ULCERATIVE
     Dosage: 500 MILLIGRAM, QID
     Route: 048
     Dates: start: 202007

REACTIONS (2)
  - Muscle spasms [Unknown]
  - Diarrhoea haemorrhagic [Unknown]
